FAERS Safety Report 20920614 (Version 1)
Quarter: 2022Q2

REPORT INFORMATION
  Report Type: Spontaneous
  Country: US (occurrence: US)
  Receive Date: 20220606
  Receipt Date: 20220606
  Transmission Date: 20220721
  Serious: No
  Sender: FDA-Public Use
  Company Number: US-BRISTOL-MYERS SQUIBB COMPANY-2022-038212

PATIENT
  Age: 69 Year
  Sex: Female

DRUGS (1)
  1. POMALYST [Suspect]
     Active Substance: POMALIDOMIDE
     Indication: Plasma cell myeloma
     Dosage: DOSE: 2 MILLIGRAM, FREQ: TAKE 1 CAPSULE BY MOUTH DAILY WHOLE W/ WATER W/ OR W/O FOOD AT THE SAME TIM
     Route: 048
     Dates: start: 20210720

REACTIONS (1)
  - Asthenia [Unknown]
